FAERS Safety Report 4462321-6 (Version None)
Quarter: 2004Q3

REPORT INFORMATION
  Report Type: 
  Country: None (occurrence: None)
  Receive Date: 20040924
  Receipt Date: 20040910
  Transmission Date: 20050211
  Serious: Yes (Hospitalization)
  Sender: FDA-Public Use
  Company Number: AZAUS200400089

PATIENT
  Age: 70 Year
  Sex: Male
  Weight: 86 kg

DRUGS (8)
  1. VIDAZA [Suspect]
     Indication: MYELODYSPLASTIC SYNDROME
     Dosage: SEE IMAGE
     Route: 058
     Dates: start: 20040726, end: 20040801
  2. VIDAZA [Suspect]
     Indication: MYELODYSPLASTIC SYNDROME
     Dosage: SEE IMAGE
     Route: 058
     Dates: start: 20040831, end: 20040906
  3. TORSEMIDE (TORASEMIDE) [Concomitant]
  4. AMIODARONE HCL [Concomitant]
  5. CARVEDILOL [Concomitant]
  6. VICODIN [Concomitant]
  7. DIGOXIN [Concomitant]
  8. MORPHINE SULFATE [Concomitant]

REACTIONS (4)
  - BACTERIAL INFECTION [None]
  - CATHETER RELATED INFECTION [None]
  - ORAL CANDIDIASIS [None]
  - PERICARDIAL EFFUSION [None]
